FAERS Safety Report 17237508 (Version 6)
Quarter: 2024Q4

REPORT INFORMATION
  Report Type: Spontaneous
  Country: US (occurrence: US)
  Receive Date: 20200106
  Receipt Date: 20241016
  Transmission Date: 20250115
  Serious: Yes (Life-Threatening, Hospitalization)
  Sender: PFIZER
  Company Number: US-PFIZER INC-2019557035

PATIENT
  Age: 82 Year
  Sex: Female

DRUGS (2)
  1. THEOPHYLLINE [Interacting]
     Active Substance: THEOPHYLLINE
     Indication: Chronic obstructive pulmonary disease
     Dosage: UNK
  2. LEVOFLOXACIN [Interacting]
     Active Substance: LEVOFLOXACIN
     Dosage: UNK

REACTIONS (8)
  - Atrial fibrillation [Unknown]
  - Drug level above therapeutic [Unknown]
  - Drug interaction [Unknown]
  - Hypotension [Unknown]
  - Nausea [Unknown]
  - Hypokalaemia [Unknown]
  - Tremor [Unknown]
  - Dizziness [Unknown]
